FAERS Safety Report 21208131 (Version 1)
Quarter: 2022Q3

REPORT INFORMATION
  Report Type: Spontaneous
  Country: IS (occurrence: IS)
  Receive Date: 20220812
  Receipt Date: 20220812
  Transmission Date: 20221026
  Serious: Yes (Other)
  Sender: FDA-Public Use
  Company Number: IS-ROCHE-3141562

PATIENT
  Age: 24 Year
  Sex: Male
  Weight: 100 kg

DRUGS (29)
  1. PREDNISONE [Suspect]
     Active Substance: PREDNISONE
     Indication: Burkitt^s lymphoma
     Dosage: 4TH SYSTEMIC TREATMENT
     Route: 065
     Dates: start: 20211022, end: 20211022
  2. METHOTREXATE [Suspect]
     Active Substance: METHOTREXATE
     Indication: Burkitt^s lymphoma
     Dosage: 1ST SYSTEMIC TREATMENT R-CODOX-M/IVAC
     Route: 065
     Dates: start: 20210601, end: 20210701
  3. OBINUTUZUMAB [Suspect]
     Active Substance: OBINUTUZUMAB
     Indication: Burkitt^s lymphoma
     Dosage: 2ND SYSTEMIC TREATMENT OBINUTUZUMAB-ICE
     Route: 042
     Dates: start: 20210701, end: 20210801
  4. CYTARABINE [Suspect]
     Active Substance: CYTARABINE
     Indication: Burkitt^s lymphoma
     Dosage: 1ST SYSTEMIC TREATMENT R-CODOX-M/IVAC
     Route: 065
     Dates: start: 20210601, end: 20210701
  5. CARBOPLATIN [Suspect]
     Active Substance: CARBOPLATIN
     Indication: Burkitt^s lymphoma
     Dosage: 2ND SYSTEMIC TREATMENT OBINUTUZUMAB-ICE
     Route: 065
     Dates: start: 20210701, end: 20210801
  6. DOXORUBICIN [Suspect]
     Active Substance: DOXORUBICIN
     Indication: Burkitt^s lymphoma
     Dosage: 4TH SYSTEMIC TREATMENT
     Route: 065
     Dates: start: 20211022, end: 20211022
  7. DOXORUBICIN [Suspect]
     Active Substance: DOXORUBICIN
     Dosage: 1ST SYSTEMIC TREATMENT R-CODOX-M/IVAC
     Route: 065
     Dates: start: 20210601, end: 20210701
  8. RITUXIMAB [Suspect]
     Active Substance: RITUXIMAB
     Indication: Burkitt^s lymphoma
     Dosage: 4TH SYSTEMIC TREATMENT
     Route: 065
     Dates: start: 20211022, end: 20211022
  9. RITUXIMAB [Suspect]
     Active Substance: RITUXIMAB
     Dosage: 1ST SYSTEMIC TREATMENT R-CODOX-M/IVAC
     Route: 065
     Dates: start: 20210601, end: 20210701
  10. IFOSFAMIDE [Suspect]
     Active Substance: IFOSFAMIDE
     Indication: Burkitt^s lymphoma
     Dosage: 1ST SYSTEMIC TREATMENT R-CODOX-M/IVAC
     Route: 065
     Dates: start: 20210601, end: 20210701
  11. IFOSFAMIDE [Suspect]
     Active Substance: IFOSFAMIDE
     Dosage: 2ND SYSTEMIC TREATMENT OBINUTUZUMAB-ICE
     Route: 065
     Dates: start: 20210701, end: 20210801
  12. ETOPOSIDE [Suspect]
     Active Substance: ETOPOSIDE
     Indication: Burkitt^s lymphoma
     Dosage: 1ST SYSTEMIC TREATMENT R-CODOX-M/IVAC
     Route: 065
     Dates: start: 20210601, end: 20210701
  13. ETOPOSIDE [Suspect]
     Active Substance: ETOPOSIDE
     Dosage: 2ND SYSTEMIC TREATMENT OBINUTUZUMAB-ICE
     Route: 065
     Dates: start: 20210701, end: 20210801
  14. MELPHALAN [Suspect]
     Active Substance: MELPHALAN
     Indication: Burkitt^s lymphoma
     Dosage: GEMCITABINE-BASED REGIMEND1
     Route: 065
     Dates: start: 20210901, end: 20211001
  15. CYCLOPHOSPHAMIDE [Suspect]
     Active Substance: CYCLOPHOSPHAMIDE
     Indication: Burkitt^s lymphoma
     Dosage: 4TH SYSTEMIC TREATMENT
     Route: 065
     Dates: start: 20211022, end: 20211022
  16. CYCLOPHOSPHAMIDE [Suspect]
     Active Substance: CYCLOPHOSPHAMIDE
     Dosage: 1ST SYSTEMIC TREATMENT R-CODOX-M/IVAC
     Route: 065
     Dates: start: 20210601, end: 20210701
  17. VINCRISTINE [Suspect]
     Active Substance: VINCRISTINE
     Indication: Burkitt^s lymphoma
     Dosage: 4TH SYSTEMIC TREATMENT
     Route: 065
     Dates: start: 20211022, end: 20211022
  18. VINCRISTINE [Suspect]
     Active Substance: VINCRISTINE
     Dosage: 1ST SYSTEMIC TREATMENT R-CODOX-M/IVAC
     Route: 065
     Dates: start: 20210601, end: 20210701
  19. GEMCITABINE [Suspect]
     Active Substance: GEMCITABINE
     Indication: Burkitt^s lymphoma
     Dosage: GEMCITABINE-BASED REGIMENDAY 1, 8, 15
     Route: 065
     Dates: start: 20210901, end: 20211001
  20. CITALOPRAM [Concomitant]
     Active Substance: CITALOPRAM HYDROBROMIDE
     Dosage: 20 MILLIGRAM
     Route: 065
  21. MORPHINE SULFATE [Concomitant]
     Active Substance: MORPHINE SULFATE
     Dosage: 20 MG X2
     Route: 065
  22. ALLOPURINOL [Concomitant]
     Active Substance: ALLOPURINOL
     Route: 065
  23. VANCOMYCIN [Concomitant]
     Active Substance: VANCOMYCIN
     Dosage: 1.5 GRAM
     Route: 065
  24. METRONIDAZOLE [Concomitant]
     Active Substance: METRONIDAZOLE
     Route: 065
  25. FLUCONAZOLE [Concomitant]
     Active Substance: FLUCONAZOLE
     Route: 065
  26. OXAZEPAM [Concomitant]
     Active Substance: OXAZEPAM
     Dosage: 10 MILLIGRAM
     Route: 065
  27. ACYCLOVIR [Concomitant]
     Active Substance: ACYCLOVIR
     Route: 065
  28. ACETAMINOPHEN [Concomitant]
     Active Substance: ACETAMINOPHEN
     Dosage: 1000 MG X4
     Route: 065
  29. MEROPENEM [Concomitant]
     Active Substance: MEROPENEM
     Dosage: 1 GRAM
     Route: 065

REACTIONS (3)
  - Small intestinal perforation [Unknown]
  - Blood lactate dehydrogenase increased [Unknown]
  - Disease progression [Unknown]
